FAERS Safety Report 4849872-7 (Version None)
Quarter: 2005Q4

REPORT INFORMATION
  Report Type: 
  Country: None (occurrence: None)
  Receive Date: 20051209
  Receipt Date: 20051005
  Transmission Date: 20060501
  Serious: Yes (Disabling, Other)
  Sender: FDA-Public Use
  Company Number: US-MERCK-0510USA04091

PATIENT
  Age: 55 Year
  Sex: Female
  Weight: 99 kg

DRUGS (5)
  1. VIOXX [Suspect]
     Indication: ARTHRITIS
     Route: 048
     Dates: start: 19990101, end: 20041001
  2. VIOXX [Suspect]
     Route: 048
     Dates: start: 19990101, end: 20041001
  3. VIOXX [Suspect]
     Indication: LIMB INJURY
     Route: 048
     Dates: start: 19990101, end: 20041001
  4. VIOXX [Suspect]
     Route: 048
     Dates: start: 19990101, end: 20041001
  5. LIPITOR [Concomitant]
     Route: 065

REACTIONS (6)
  - CAROTID ARTERY STENOSIS [None]
  - CEREBROVASCULAR ACCIDENT [None]
  - CHEST PAIN [None]
  - COGNITIVE DISORDER [None]
  - NERVOUS SYSTEM DISORDER [None]
  - TRANSIENT ISCHAEMIC ATTACK [None]
